FAERS Safety Report 18232608 (Version 3)
Quarter: 2020Q4

REPORT INFORMATION
  Report Type: Spontaneous
  Country: US (occurrence: US)
  Receive Date: 20200904
  Receipt Date: 20201203
  Transmission Date: 20210113
  Serious: No
  Sender: FDA-Public Use
  Company Number: US-PFIZER INC-2020342551

PATIENT
  Age: 58 Year
  Sex: Female
  Weight: 55.79 kg

DRUGS (1)
  1. IBRANCE [Suspect]
     Active Substance: PALBOCICLIB
     Dosage: 125 MG (125MG FOR 21 DAYS)

REACTIONS (1)
  - Breast pain [Unknown]

NARRATIVE: CASE EVENT DATE: 202008
